FAERS Safety Report 12470379 (Version 2)
Quarter: 2016Q2

REPORT INFORMATION
  Report Type: Spontaneous
  Country: DE (occurrence: DE)
  Receive Date: 20160616
  Receipt Date: 20160617
  Transmission Date: 20160815
  Serious: Yes (Hospitalization)
  Sender: FDA-Public Use
  Company Number: DE-009507513-1605DEU013678

PATIENT
  Sex: Female

DRUGS (1)
  1. OVESTIN 1MG CR?ME [Suspect]
     Active Substance: ESTRIOL
     Dosage: UNK
     Route: 061
     Dates: start: 201603

REACTIONS (2)
  - Gallbladder polyp [Recovered/Resolved]
  - Gallbladder pain [Recovered/Resolved]

NARRATIVE: CASE EVENT DATE: 201604
